FAERS Safety Report 15111659 (Version 1)
Quarter: 2018Q3

REPORT INFORMATION
  Report Type: Spontaneous
  Country: US (occurrence: US)
  Receive Date: 20180705
  Receipt Date: 20180705
  Transmission Date: 20181010
  Serious: Yes (Hospitalization, Other)
  Sender: FDA-Public Use
  Company Number: US-SEBELA IRELAND LIMITED-2018SEB00170

PATIENT
  Sex: Female
  Weight: 90.7 kg

DRUGS (3)
  1. ZYRTEC [Concomitant]
     Active Substance: CETIRIZINE HYDROCHLORIDE
     Dosage: UNK, 1X/DAY
  2. TYLENOL [Concomitant]
     Active Substance: ACETAMINOPHEN
     Dosage: EVERY 2?3 WEEKS
  3. LOTRONEX [Suspect]
     Active Substance: ALOSETRON HYDROCHLORIDE
     Indication: DIARRHOEA
     Dosage: 0.5 MG, 2X/DAY
     Route: 048

REACTIONS (9)
  - Oesophageal disorder [Unknown]
  - Weight decreased [Unknown]
  - Headache [Unknown]
  - Foot fracture [Unknown]
  - Gallbladder disorder [Unknown]
  - Hallucination [Unknown]
  - Coeliac disease [Unknown]
  - Drug ineffective [Recovered/Resolved]
  - Loss of consciousness [Unknown]

NARRATIVE: CASE EVENT DATE: 2015
